FAERS Safety Report 10699315 (Version 1)
Quarter: 2015Q1

REPORT INFORMATION
  Report Type: Spontaneous
  Country: CA (occurrence: CA)
  Receive Date: 20150109
  Receipt Date: 20150109
  Transmission Date: 20150721
  Serious: Yes (Death, Life-Threatening, Hospitalization, Other)
  Sender: FDA-Public Use
  Company Number: PHHY2014CA170437

PATIENT
  Age: 71 Year
  Sex: Female

DRUGS (6)
  1. BORTEZOMIB [Suspect]
     Active Substance: BORTEZOMIB
     Indication: PLASMA CELL MYELOMA
     Route: 065
  2. PREDNISONE. [Suspect]
     Active Substance: PREDNISONE
     Indication: PLASMA CELL MYELOMA
     Route: 065
  3. LENALIDOMIDE [Suspect]
     Active Substance: LENALIDOMIDE
     Indication: PLASMA CELL MYELOMA
     Route: 065
  4. LABETALOL [Concomitant]
     Active Substance: LABETALOL\LABETALOL HYDROCHLORIDE
     Indication: BLOOD PRESSURE INCREASED
     Route: 042
  5. MELPHALAN [Suspect]
     Active Substance: MELPHALAN
     Indication: PLASMA CELL MYELOMA
     Route: 065
  6. DEXAMETHASONE. [Suspect]
     Active Substance: DEXAMETHASONE
     Indication: PLASMA CELL MYELOMA
     Route: 065

REACTIONS (13)
  - Headache [Recovered/Resolved]
  - Thrombocytopenia [Unknown]
  - Plasma cell myeloma [Fatal]
  - Fatigue [Unknown]
  - Diarrhoea [Unknown]
  - Posterior reversible encephalopathy syndrome [Recovered/Resolved]
  - Bone marrow failure [Unknown]
  - Generalised tonic-clonic seizure [Recovered/Resolved]
  - Altered state of consciousness [Recovered/Resolved]
  - Brain oedema [Unknown]
  - Neuropathy peripheral [Unknown]
  - Oncologic complication [Fatal]
  - Drug effect incomplete [Unknown]
